FAERS Safety Report 4593384-5 (Version None)
Quarter: 2005Q1

REPORT INFORMATION
  Report Type: 
  Country: None (occurrence: None)
  Receive Date: 20050224
  Receipt Date: 20040518
  Transmission Date: 20050727
  Serious: No
  Sender: FDA-Public Use
  Company Number: US-BRISTOL-MYERS SQUIBB COMPANY-12599189

PATIENT
  Age: 70 Year
  Sex: Female
  Weight: 49 kg

DRUGS (2)
  1. EXCEDRIN (MIGRAINE) [Suspect]
     Indication: PAIN
     Dosage: 2 TABS AT A TIME.
     Route: 048
  2. EXCEDRIN (MIGRAINE) [Suspect]
     Indication: HEADACHE
     Dosage: 2 TABS AT A TIME.
     Route: 048

REACTIONS (1)
  - EPISTAXIS [None]
